FAERS Safety Report 12467813 (Version 4)
Quarter: 2017Q1

REPORT INFORMATION
  Report Type: Spontaneous
  Country: JP (occurrence: JP)
  Receive Date: 20160615
  Receipt Date: 20170316
  Transmission Date: 20170428
  Serious: Yes (Hospitalization, Other)
  Sender: FDA-Public Use
  Company Number: JP-BAXALTA-2016BXJ003759

PATIENT
  Age: 1 Month
  Sex: Male
  Weight: 6 kg

DRUGS (8)
  1. ADVATE [Suspect]
     Active Substance: ANTIHEMOPHILIC FACTOR, HUMAN RECOMBINANT
     Indication: LUMBAR PUNCTURE
     Dosage: 5 IU/HR, CONTINUOUS IV INFUSION
     Route: 041
     Dates: start: 20150615, end: 20150618
  2. ADVATE [Suspect]
     Active Substance: ANTIHEMOPHILIC FACTOR, HUMAN RECOMBINANT
     Dosage: 100 IU, ONCE
     Route: 042
     Dates: start: 20150620, end: 20150620
  3. ADVATE [Suspect]
     Active Substance: ANTIHEMOPHILIC FACTOR, HUMAN RECOMBINANT
     Dosage: 100 IU, ONCE
     Route: 042
     Dates: start: 20150703, end: 20150703
  4. ADVATE [Suspect]
     Active Substance: ANTIHEMOPHILIC FACTOR, HUMAN RECOMBINANT
     Indication: HAEMORRHAGE INTRACRANIAL
     Dosage: 10 IU/HR, CONTINUOUS IV INFUSION
     Route: 041
     Dates: start: 20150608, end: 20150615
  5. ADVATE [Suspect]
     Active Substance: ANTIHEMOPHILIC FACTOR, HUMAN RECOMBINANT
     Dosage: 100 IU, ONCE
     Route: 042
     Dates: start: 20150622, end: 20150622
  6. ADVATE [Suspect]
     Active Substance: ANTIHEMOPHILIC FACTOR, HUMAN RECOMBINANT
     Indication: FACTOR VIII DEFICIENCY
     Dosage: 125 IU, ONCE
     Route: 042
     Dates: start: 20150608, end: 20150608
  7. ADVATE [Suspect]
     Active Substance: ANTIHEMOPHILIC FACTOR, HUMAN RECOMBINANT
     Dosage: 100 IU, ONCE
     Route: 042
     Dates: start: 20150626, end: 20150626
  8. ADVATE [Suspect]
     Active Substance: ANTIHEMOPHILIC FACTOR, HUMAN RECOMBINANT
     Dosage: 100 IU, ONCE
     Route: 042
     Dates: start: 20150710, end: 20150710

REACTIONS (3)
  - Haemorrhage [Recovered/Resolved]
  - Seizure [Recovering/Resolving]
  - Factor VIII inhibition [Recovering/Resolving]

NARRATIVE: CASE EVENT DATE: 20150716
